FAERS Safety Report 4689085-5 (Version None)
Quarter: 2005Q2

REPORT INFORMATION
  Report Type: 
  Country: None (occurrence: None)
  Receive Date: 20050608
  Receipt Date: 20050315
  Transmission Date: 20051028
  Serious: No
  Sender: FDA-Public Use
  Company Number: 2005-BP-04346BP

PATIENT
  Sex: Female

DRUGS (4)
  1. SPIRIVA [Suspect]
     Indication: CHRONIC OBSTRUCTIVE PULMONARY DISEASE
     Dosage: 18 MCG (18 MCG, QD), IH
     Route: 055
     Dates: start: 20041001, end: 20050101
  2. SPIRIVA [Suspect]
  3. OXYGEN (OXYGEN) [Concomitant]
  4. LISINOPRIL [Concomitant]

REACTIONS (3)
  - CATARACT [None]
  - VISION BLURRED [None]
  - VISUAL ACUITY REDUCED [None]
